FAERS Safety Report 9461207 (Version 1)
Quarter: 2013Q3

REPORT INFORMATION
  Report Type: Spontaneous
  Country: US (occurrence: None)
  Receive Date: 20130814
  Receipt Date: 20130814
  Transmission Date: 20140515
  Serious: Yes (Other)
  Sender: FDA-Public Use
  Company Number: None

PATIENT
  Age: 75 Year
  Sex: Female
  Weight: 83.01 kg

DRUGS (11)
  1. NEURONTIN [Suspect]
  2. NORVAC [Concomitant]
  3. IBUPROPHEN [Concomitant]
  4. BABY ASPRIN [Concomitant]
  5. CORTIZONE 10 [Concomitant]
  6. FEROSUL [Concomitant]
  7. IBUPROFEN [Concomitant]
  8. ASPIRIN [Concomitant]
  9. NORVSAC [Concomitant]
  10. DIPHENHYDRAMINE HYDROCHLORIDE [Concomitant]
  11. QNAPRIL/HCTZ [Concomitant]

REACTIONS (7)
  - Fatigue [None]
  - Somnolence [None]
  - Dizziness [None]
  - Diarrhoea [None]
  - Drug hypersensitivity [None]
  - Psoriasis [None]
  - Pruritus [None]
